FAERS Safety Report 5194057-0 (Version None)
Quarter: 2006Q4

REPORT INFORMATION
  Report Type: 
  Country: None (occurrence: None)
  Receive Date: 20061222
  Receipt Date: 20061211
  Transmission Date: 20070319
  Serious: Yes (Death, Hospitalization)
  Sender: FDA-Public Use
  Company Number: 2006002222

PATIENT
  Age: 73 Year
  Sex: Male
  Weight: 82.1011 kg

DRUGS (11)
  1. ERLOTINIB (TABLET) [Suspect]
     Indication: NON-SMALL CELL LUNG CANCER
     Dosage: 150 MG (QD), ORAL
     Route: 048
  2. DECADRON [Concomitant]
  3. ASPIRIN [Concomitant]
  4. ZYRTEC [Concomitant]
  5. ALFUZOSIN [Concomitant]
  6. PLAVIX [Concomitant]
  7. LASIX [Concomitant]
  8. FLOXIL (STREPSILS) [Concomitant]
  9. ZOCOR [Concomitant]
  10. HUMALOG [Concomitant]
  11. LANTUS [Concomitant]

REACTIONS (13)
  - ACUTE PRERENAL FAILURE [None]
  - DIABETES MELLITUS INADEQUATE CONTROL [None]
  - DYSARTHRIA [None]
  - HYPERGLYCAEMIA [None]
  - HYPOVOLAEMIA [None]
  - MALIGNANT NEOPLASM PROGRESSION [None]
  - MUSCLE TWITCHING [None]
  - NON-SMALL CELL LUNG CANCER [None]
  - POSTOPERATIVE RENAL FAILURE [None]
  - SUBDURAL HAEMATOMA [None]
  - SUBDURAL HYGROMA [None]
  - TREMOR [None]
  - URINE OUTPUT DECREASED [None]
